FAERS Safety Report 8149057-5 (Version None)
Quarter: 2012Q1

REPORT INFORMATION
  Report Type: 
  Country: None (occurrence: None)
  Receive Date: 20120218
  Receipt Date: 20120109
  Transmission Date: 20120608
  Serious: No
  Sender: FDA-Public Use
  Company Number: US-ALLERGAN-1111283US

PATIENT
  Age: 12 Year
  Sex: Male

DRUGS (1)
  1. BOTULINUM TOXIN TYPE A [Suspect]
     Indication: MUSCLE SPASTICITY
     Dosage: 200 UNITS, SINGLE 100 UNIT EACH EXTREMITY
     Route: 030
     Dates: start: 20110805, end: 20110805

REACTIONS (4)
  - NAUSEA [None]
  - HEADACHE [None]
  - DRUG INEFFECTIVE [None]
  - VOMITING [None]
